FAERS Safety Report 7807622 (Version 3)
Quarter: 2014Q1

REPORT INFORMATION
  Report Type: Spontaneous
  Country: US (occurrence: US)
  Receive Date: 20110210
  Receipt Date: 20140123
  Transmission Date: 20141002
  Serious: Yes (Other)
  Sender: FDA-Public Use
  Company Number: US-BAYER-2011-013145

PATIENT
  Age: 24 Year
  Sex: Female
  Weight: 55 kg

DRUGS (5)
  1. YAZ [Suspect]
     Dosage: UNK
     Dates: start: 200805, end: 20090929
  2. VITAMIN C [Concomitant]
  3. XALATAN [Concomitant]
     Indication: GLAUCOMA
     Dosage: UNK
     Dates: start: 2003
  4. TIMOPTIC [Concomitant]
  5. VESICARE [Concomitant]

REACTIONS (3)
  - Gallbladder disorder [None]
  - Cholecystitis chronic [None]
  - Abdominal pain [None]
